FAERS Safety Report 20392824 (Version 1)
Quarter: 2022Q1

REPORT INFORMATION
  Report Type: Spontaneous
  Country: None (occurrence: US)
  Receive Date: 20220128
  Receipt Date: 20220128
  Transmission Date: 20220423
  Serious: No
  Sender: FDA-Public Use
  Company Number: US-SmartPractice Denmark ApS-2124404

PATIENT
  Sex: Female

DRUGS (1)
  1. T.R.U.E. TEST (THIN-LAYER RAPID USE EPICUTANEOUS PATCH TEST) [Suspect]
     Active Substance: ALLERGEN PATCH TEST
     Indication: Dermatitis
     Route: 061
     Dates: start: 20210201, end: 20210203

REACTIONS (1)
  - Skin test positive [Unknown]

NARRATIVE: CASE EVENT DATE: 20210302
